FAERS Safety Report 18473664 (Version 10)
Quarter: 2024Q1

REPORT INFORMATION
  Report Type: Spontaneous
  Country: US (occurrence: US)
  Receive Date: 20201106
  Receipt Date: 20240125
  Transmission Date: 20240410
  Serious: Yes (Disabling, Other)
  Sender: FDA-Public Use
  Company Number: US-PFIZER INC-2020429966

PATIENT
  Age: 58 Year
  Sex: Female

DRUGS (1)
  1. XELJANZ [Suspect]
     Active Substance: TOFACITINIB CITRATE
     Indication: Rheumatoid arthritis
     Dosage: 10 MG PO BID (PER ORAL TWICE A DAY)
     Route: 048

REACTIONS (7)
  - Pain [Not Recovered/Not Resolved]
  - Condition aggravated [Unknown]
  - COVID-19 [Unknown]
  - Sleep disorder due to general medical condition, insomnia type [Unknown]
  - Pain in extremity [Unknown]
  - Arthralgia [Unknown]
  - Off label use [Unknown]

NARRATIVE: CASE EVENT DATE: 20220501
